FAERS Safety Report 7307326-2 (Version None)
Quarter: 2011Q1

REPORT INFORMATION
  Report Type: 
  Country: None (occurrence: None)
  Receive Date: 20110223
  Receipt Date: 20110215
  Transmission Date: 20110831
  Serious: Yes (Death, Hospitalization, Other)
  Sender: FDA-Public Use
  Company Number: FR-PFIZER INC-2010129791

PATIENT
  Age: 79 Year
  Sex: Female
  Weight: 103 kg

DRUGS (42)
  1. FLUCONAZOLE [Concomitant]
     Indication: ANTIFUNGAL TREATMENT
     Dosage: 400 MG, 1X/DAY
     Route: 042
     Dates: start: 20100929, end: 20101007
  2. INIPOMP [Concomitant]
     Dosage: 40 MG, 1X/DAY
     Route: 042
     Dates: start: 20100916, end: 20100924
  3. FUROSEMIDE [Concomitant]
     Dosage: 20 MG/HR, CONTINUOUS
     Route: 042
     Dates: start: 20100924, end: 20100927
  4. INSULIN [Concomitant]
     Dosage: 1.6 UNITS/HR, CONTINUOUS
     Route: 042
     Dates: start: 20100923, end: 20100924
  5. CORDARONE [Concomitant]
     Indication: ATRIAL FIBRILLATION
     Dosage: 600 MG/G, CONTINUOUS
     Route: 042
     Dates: start: 20100916, end: 20100920
  6. ARGATROBAN [Suspect]
     Indication: HEPARIN-INDUCED THROMBOCYTOPENIA
     Dosage: 576 MCG/KG (0.4 MCG/KG, 1 IN 1 MIN)
     Route: 042
     Dates: start: 20100922
  7. INIPOMP [Concomitant]
     Indication: PROPHYLAXIS AGAINST GASTROINTESTINAL ULCER
     Dosage: 40 MG, 1X/DAY
     Route: 042
     Dates: start: 20100925, end: 20101007
  8. ASPEGIC 325 [Concomitant]
     Indication: ACUTE CORONARY SYNDROME
     Dosage: 125 MG, 1X/DAY
     Route: 042
     Dates: start: 20100916, end: 20100921
  9. SODIUM CHLORIDE [Concomitant]
     Indication: ENTERAL NUTRITION
     Dosage: 500 ML, 1X/DAY
     Dates: start: 20100929, end: 20101002
  10. AMIODARONE [Concomitant]
     Indication: ARRHYTHMIA
     Dosage: 600 MG IN 50 ML, 600 MG, CONTINUOUS
     Route: 042
     Dates: start: 20100928, end: 20101005
  11. PARACETAMOL [Concomitant]
     Indication: ANALGESIC THERAPY
     Dosage: 1000 MG, 4X/DAY
     Route: 042
     Dates: start: 20100925, end: 20101002
  12. TEICOPLANIN [Concomitant]
     Indication: PNEUMONIA
     Dosage: 400 MG, PER 72 HOURS
     Route: 042
     Dates: start: 20100925, end: 20100928
  13. VALIUM [Concomitant]
     Dosage: 1 MG/HR, CONTINOUS
     Route: 042
     Dates: start: 20100916, end: 20100922
  14. CHINOMILLE [Concomitant]
     Indication: MEDICAL DIET
     Dosage: 1000 ML, CONTINUOUS
     Route: 042
     Dates: start: 20101004, end: 20101009
  15. GLUCIDION [Concomitant]
     Indication: INFUSION
     Dosage: 250 ML, CONTINUOUS
     Route: 042
     Dates: start: 20100923, end: 20101009
  16. NORADRENALINE [Concomitant]
     Indication: SEPTIC SHOCK
     Dosage: 8 MG IN 48 ML, 8 MG, CONTINUOUS
     Route: 042
     Dates: start: 20100925, end: 20100928
  17. FUROSEMIDE [Concomitant]
     Indication: RENAL FAILURE
     Dosage: 40 MG, 1 IN 1 HR
     Route: 042
     Dates: start: 20100928, end: 20101006
  18. RED BLOOD CELLS [Concomitant]
     Dosage: 2 UNITS, DAILY
     Route: 042
     Dates: start: 20100925, end: 20100925
  19. VALIUM [Concomitant]
     Indication: PSYCHOTIC DISORDER
     Dosage: 0.5 MG/HR, CONTINUOS
     Route: 042
     Dates: start: 20100922, end: 20100923
  20. ASPEGIC 325 [Concomitant]
     Indication: ANTICOAGULANT THERAPY
     Dosage: 100 MG, 1X/DAY
     Route: 042
     Dates: start: 20100925, end: 20101007
  21. TAZOCILLINE [Concomitant]
     Dosage: 4 G, 2X/DAY
     Route: 042
     Dates: start: 20100915, end: 20100924
  22. PHOCYTAN [Concomitant]
     Indication: HYPOPHOSPHATAEMIA
     Dosage: 50 MG, 1X/DAY
     Route: 042
     Dates: start: 20100928, end: 20100929
  23. INSULIN [Concomitant]
     Indication: DIABETES MELLITUS
     Dosage: 50 IU IN 50 ML, CONTINUOUS
     Route: 042
     Dates: start: 20100925, end: 20101007
  24. ALBUMIN NORMAL HUMAN SERUM [Concomitant]
     Indication: HYPOVOLAEMIA
     Dosage: 20 G, 1X/DAY
     Route: 042
     Dates: start: 20100925, end: 20100926
  25. GELOFUSINE [Concomitant]
     Indication: HYPOVOLAEMIA
     Dosage: 500 ML, 1X/DAY
     Route: 042
     Dates: start: 20100917, end: 20100918
  26. TIAPRIDAL [Concomitant]
     Indication: AGITATION
     Dosage: 100 MG, AS NEEDED
     Route: 042
     Dates: start: 20100916, end: 20100924
  27. ACUPAN [Concomitant]
     Indication: PROCEDURAL PAIN
     Dosage: 3.3 MG/HR, CONTINUOUS
     Route: 042
     Dates: start: 20100916, end: 20100923
  28. LIPIDS NOS [Concomitant]
     Indication: PARENTERAL NUTRITION
     Dosage: 1000 ML, 1X/DAY
     Route: 042
     Dates: start: 20100927, end: 20101002
  29. INSULIN [Concomitant]
     Dosage: 6 UNITS, 1X/DAY
     Route: 058
     Dates: start: 20100919, end: 20100920
  30. EPOETIN BETA [Concomitant]
     Indication: ANAEMIA
     Dosage: 30000 IU, 1X/DAY
     Route: 042
     Dates: start: 20100925, end: 20100925
  31. NEFOPAM [Concomitant]
     Indication: ANALGESIC THERAPY
     Dosage: 100 MG, CONTINUOUS
     Route: 042
     Dates: start: 20100924, end: 20100927
  32. TARGOCID [Concomitant]
     Indication: STAPHYLOCOCCAL INFECTION
     Dosage: 200 MG, 2X/DAY
     Route: 042
     Dates: start: 20100923, end: 20101009
  33. NORADRENALINE [Concomitant]
     Dosage: 0.2 MCG/KG/MIN, CONTINUOUS
     Route: 042
     Dates: start: 20100915, end: 20100920
  34. RED BLOOD CELLS [Concomitant]
     Indication: ANAEMIA
     Dosage: 3 UNITS, DAILY
     Route: 042
     Dates: start: 20100926, end: 20100926
  35. PROPOFOL [Concomitant]
     Indication: SEDATION
     Dosage: 500 MG IN 50 ML, CONTINUOUS
     Route: 042
     Dates: start: 20100925, end: 20100927
  36. INSULIN [Concomitant]
     Dosage: 0.6 UNITS/HR, CONTINUOUS
     Route: 042
     Dates: start: 20100920, end: 20100922
  37. TAZOCILLINE [Concomitant]
     Indication: PNEUMONIA
     Dosage: 4 G, 2X/DAY
     Route: 042
     Dates: start: 20100925, end: 20101007
  38. NORADRENALINE [Concomitant]
     Indication: HYPOTENSION
     Dosage: 0.03 MCG/KG/MIN, CONTINUOUS
     Route: 042
     Dates: start: 20101004, end: 20101009
  39. PHOCYTAN [Concomitant]
     Dosage: 20 ML, 1X/DAY
     Route: 042
     Dates: start: 20100920, end: 20100924
  40. LIPIDS NOS [Concomitant]
     Dosage: 1000 ML, CONTINUOUS
     Route: 042
     Dates: start: 20100916, end: 20100924
  41. EPOPROSTENOL [Concomitant]
     Indication: VASODILATION PROCEDURE
     Dosage: 500 MG IN 50 ML, CONTINUOUS
     Route: 042
     Dates: start: 20100925, end: 20101002
  42. FOLINIC ACID [Concomitant]
     Indication: HYPOVITAMINOSIS
     Dosage: 50 MG, CONTINUOUS
     Route: 042
     Dates: start: 20100925, end: 20101007

REACTIONS (3)
  - LUNG DISORDER [None]
  - SEPSIS [None]
  - GENERAL PHYSICAL HEALTH DETERIORATION [None]
